FAERS Safety Report 17163353 (Version 1)
Quarter: 2019Q4

REPORT INFORMATION
  Report Type: Spontaneous
  Country: US (occurrence: US)
  Receive Date: 20191124
  Receipt Date: 20191124
  Transmission Date: 20200122
  Serious: No
  Sender: FDA-Public Use
  Company Number: None

PATIENT
  Age: 67 Year
  Sex: Male

DRUGS (1)
  1. CALCIPOTRIENE. [Suspect]
     Active Substance: CALCIPOTRIENE
     Indication: ECZEMA
     Dates: start: 20190401, end: 20190601

REACTIONS (1)
  - Eye swelling [None]

NARRATIVE: CASE EVENT DATE: 20190927
